FAERS Safety Report 18765717 (Version 1)
Quarter: 2021Q1

REPORT INFORMATION
  Report Type: Spontaneous
  Country: US (occurrence: US)
  Receive Date: 20210120
  Receipt Date: 20210120
  Transmission Date: 20210419
  Serious: Yes (Other)
  Sender: FDA-Public Use
  Company Number: US-MALLINCKRODT-T202100219

PATIENT
  Age: 80 Year
  Sex: Female
  Weight: 43 kg

DRUGS (1)
  1. AMITIZA [Suspect]
     Active Substance: LUBIPROSTONE
     Indication: IRRITABLE BOWEL SYNDROME
     Dosage: 25 MICROGRAM, BID (1 CAPSULES IN THE MORNING AND 1 CAPSULE AT NIGHT)
     Route: 048
     Dates: start: 2020

REACTIONS (4)
  - COVID-19 [Unknown]
  - Weight decreased [Unknown]
  - Therapeutic product effect incomplete [Unknown]
  - Product dose omission issue [Not Recovered/Not Resolved]

NARRATIVE: CASE EVENT DATE: 20210112
